APPROVED DRUG PRODUCT: EVEROLIMUS
Active Ingredient: EVEROLIMUS
Strength: 5MG
Dosage Form/Route: TABLET;ORAL
Application: A205426 | Product #002 | TE Code: AB
Applicant: BRECKENRIDGE PHARMACEUTICAL INC
Approved: Mar 5, 2021 | RLD: No | RS: No | Type: RX